FAERS Safety Report 4889506-9 (Version None)
Quarter: 2006Q1

REPORT INFORMATION
  Report Type: 
  Country: None (occurrence: None)
  Receive Date: 20060120
  Receipt Date: 20060110
  Transmission Date: 20060701
  Serious: Yes (Other)
  Sender: FDA-Public Use
  Company Number: 2006006706

PATIENT
  Age: 52 Year
  Sex: Female

DRUGS (3)
  1. NORVASC [Suspect]
     Indication: HYPERTENSION
     Dosage: 10 MG (10 MG, DAILY INTERVAL: EVERY DAY)
  2. ZOCOR (SIMASTATIN) [Concomitant]
  3. TRAZODONE (TRAZODONE) [Concomitant]

REACTIONS (3)
  - BREAST CANCER FEMALE [None]
  - DRUG DOSE OMISSION [None]
  - HYPERTENSION [None]
